FAERS Safety Report 15684991 (Version 1)
Quarter: 2018Q4

REPORT INFORMATION
  Report Type: Spontaneous
  Country: IE (occurrence: IE)
  Receive Date: 20181204
  Receipt Date: 20181204
  Transmission Date: 20190205
  Serious: Yes (Death)
  Sender: FDA-Public Use
  Company Number: IE-PFIZER INC-2018492868

PATIENT
  Age: 24 Year
  Sex: Male

DRUGS (16)
  1. VALGANCICLOVIR. [Suspect]
     Active Substance: VALGANCICLOVIR
     Indication: ANTIFUNGAL PROPHYLAXIS
  2. AMOXYCILLIN [Suspect]
     Active Substance: AMOXICILLIN
     Indication: HAEMOPHILUS INFECTION
  3. HUMAN NORMAL IMMUNOGLOBULIN [Concomitant]
     Active Substance: HUMAN IMMUNOGLOBULIN G
     Dosage: UNK(THRICE-WEEKLY IMMUNOGLOBULIN)
     Route: 042
     Dates: start: 201302
  4. AMOXYCILLIN [Suspect]
     Active Substance: AMOXICILLIN
     Indication: CYTOMEGALOVIRUS INFECTION
     Dosage: UNK
     Dates: start: 2009
  5. ENOXAPARIN [Concomitant]
     Active Substance: ENOXAPARIN
     Indication: THROMBOSIS
     Dosage: UNK
     Dates: start: 2013
  6. VALGANCICLOVIR. [Suspect]
     Active Substance: VALGANCICLOVIR
     Indication: CYTOMEGALOVIRUS INFECTION
     Dosage: UNK (2-WEEK COURSE)
     Dates: start: 2009
  7. SEPTRIN [Suspect]
     Active Substance: SULFAMETHOXAZOLE\TRIMETHOPRIM
     Indication: CYTOMEGALOVIRUS INFECTION
     Dosage: UNK
     Dates: start: 201302
  8. SEPTRIN [Suspect]
     Active Substance: SULFAMETHOXAZOLE\TRIMETHOPRIM
     Indication: PROPHYLAXIS
  9. PREDNISOLONE. [Concomitant]
     Active Substance: PREDNISOLONE
     Indication: IMMUNOSUPPRESSANT DRUG THERAPY
     Dosage: UNK
     Dates: start: 201302
  10. CIPROFLOXACIN. [Suspect]
     Active Substance: CIPROFLOXACIN
     Indication: CYTOMEGALOVIRUS INFECTION
     Dosage: UNK (2 WEEKS)
     Dates: start: 2010
  11. CIPROFLOXACIN. [Suspect]
     Active Substance: CIPROFLOXACIN
     Indication: HAEMOPHILUS INFECTION
  12. VALGANCICLOVIR. [Suspect]
     Active Substance: VALGANCICLOVIR
     Indication: HAEMOPHILUS INFECTION
     Dosage: UNK
     Dates: start: 201302
  13. TACROLIMUS. [Concomitant]
     Active Substance: TACROLIMUS
     Indication: IMMUNOSUPPRESSANT DRUG THERAPY
     Dosage: UNK
     Dates: start: 201302
  14. HUMAN NORMAL IMMUNOGLOBULIN [Concomitant]
     Active Substance: HUMAN IMMUNOGLOBULIN G
     Dosage: UNK, MONTHLY
     Route: 042
  15. AZATHIOPRINE. [Concomitant]
     Active Substance: AZATHIOPRINE
     Indication: IMMUNOSUPPRESSANT DRUG THERAPY
     Dosage: UNK
     Dates: start: 201302
  16. SEPTRIN [Suspect]
     Active Substance: SULFAMETHOXAZOLE\TRIMETHOPRIM
     Indication: PNEUMOCYSTIS JIROVECII PNEUMONIA

REACTIONS (1)
  - Drug ineffective [Fatal]
